FAERS Safety Report 13239920 (Version 3)
Quarter: 2017Q2

REPORT INFORMATION
  Report Type: Spontaneous
  Country: US (occurrence: US)
  Receive Date: 20170216
  Receipt Date: 20170426
  Transmission Date: 20170830
  Serious: No
  Sender: FDA-Public Use
  Company Number: US-PFIZER INC-2017063528

PATIENT
  Age: 78 Year
  Sex: Female
  Weight: 67.59 kg

DRUGS (5)
  1. PREMARIN [Suspect]
     Active Substance: ESTROGENS, CONJUGATED
     Indication: VULVOVAGINAL DRYNESS
     Dosage: UNK
     Dates: start: 201702
  2. PREMARIN [Suspect]
     Active Substance: ESTROGENS, CONJUGATED
     Indication: ATROPHIC VULVOVAGINITIS
  3. FAMOTIDINE. [Concomitant]
     Active Substance: FAMOTIDINE
     Indication: BARRETT^S OESOPHAGUS
     Dosage: 20 MG, 1X/DAY AT BEDTIME
  4. PANTOPRAZOLE [Concomitant]
     Active Substance: PANTOPRAZOLE
     Indication: BARRETT^S OESOPHAGUS
     Dosage: 40 MG, 1X/DAY SLOW RELEASE ONCE IN THE MORNING
  5. KLONOPIN [Concomitant]
     Active Substance: CLONAZEPAM
     Indication: ESSENTIAL TREMOR
     Dosage: 1MG TABLET, TRY TO TAKE TWICE A DAY BUT PRESCRIBED AS 3 TIMES A DAY/IF SHE GETS SHAKY SHE WILL TAKE
     Dates: start: 2008

REACTIONS (4)
  - Incorrect dose administered [Unknown]
  - Wrong technique in product usage process [Unknown]
  - Visual impairment [Unknown]
  - Contraindicated product administered [Unknown]

NARRATIVE: CASE EVENT DATE: 201702
